FAERS Safety Report 6746410-9 (Version None)
Quarter: 2010Q2

REPORT INFORMATION
  Report Type: 
  Country: None (occurrence: None)
  Receive Date: 20100528
  Receipt Date: 20100518
  Transmission Date: 20101027
  Serious: Yes (Other)
  Sender: FDA-Public Use
  Company Number: US-PFIZER INC-2010062708

PATIENT
  Sex: Female
  Weight: 86.168 kg

DRUGS (7)
  1. TOVIAZ [Suspect]
     Indication: HYPERTONIC BLADDER
     Dosage: UNK
     Route: 048
  2. LIPITOR [Concomitant]
     Indication: BLOOD CHOLESTEROL INCREASED
     Dosage: 20 MG, 1X/DAY
     Route: 048
  3. NORVASC [Concomitant]
     Indication: HYPERTENSION
     Dosage: UNK
     Route: 048
  4. AMILORIDE [Concomitant]
     Indication: HYPERTENSION
     Dosage: 5 MG, 2X/DAY
     Route: 048
  5. HYDROCHLOROTHIAZIDE [Concomitant]
     Indication: HYPERTENSION
     Dosage: 50 MG, 1X/DAY
     Route: 048
  6. ZYPREXA [Concomitant]
     Indication: MENTAL DISORDER
     Dosage: 10 MG, 1X/DAY
     Route: 048
  7. DEPAKOTE [Concomitant]
     Indication: MUSCLE DISORDER
     Dosage: 750 MG, 1X/DAY
     Route: 048

REACTIONS (3)
  - RED BLOOD CELLS URINE POSITIVE [None]
  - VISION BLURRED [None]
  - WHITE BLOOD CELLS URINE POSITIVE [None]
